FAERS Safety Report 25106606 (Version 1)
Quarter: 2025Q1

REPORT INFORMATION
  Report Type: Spontaneous
  Country: US (occurrence: US)
  Receive Date: 20250321
  Receipt Date: 20250321
  Transmission Date: 20250409
  Serious: No
  Sender: Haleon PLC
  Company Number: US-HALEON-2234346

PATIENT
  Age: 79 Year
  Sex: Male

DRUGS (1)
  1. NICODERM CQ [Suspect]
     Active Substance: NICOTINE
     Indication: Product used for unknown indication

REACTIONS (4)
  - Pain in extremity [Recovering/Resolving]
  - Lacrimation increased [Recovering/Resolving]
  - Somnolence [Unknown]
  - Confusional state [Recovering/Resolving]
